FAERS Safety Report 4740503-3 (Version None)
Quarter: 2005Q3

REPORT INFORMATION
  Report Type: 
  Country: None (occurrence: None)
  Receive Date: 20050810
  Receipt Date: 20050802
  Transmission Date: 20060218
  Serious: Yes (Other)
  Sender: FDA-Public Use
  Company Number: 200516055US

PATIENT
  Age: 66 Year
  Sex: Female

DRUGS (1)
  1. LOVENOX [Suspect]
     Indication: THROMBOSIS PROPHYLAXIS
     Route: 058

REACTIONS (2)
  - DYSPNOEA [None]
  - HALLUCINATION [None]
